FAERS Safety Report 10642514 (Version 1)
Quarter: 2014Q4

REPORT INFORMATION
  Report Type: Spontaneous
  Country: BR (occurrence: BR)
  Receive Date: 20141210
  Receipt Date: 20141210
  Transmission Date: 20150529
  Serious: Yes (Other)
  Sender: FDA-Public Use
  Company Number: BR-RANBAXY-2014R5-89936

PATIENT
  Age: 24 Year
  Sex: Female
  Weight: 58 kg

DRUGS (1)
  1. ACYCLOVIR. [Suspect]
     Active Substance: ACYCLOVIR
     Indication: HERPES SIMPLEX
     Dosage: 200MG, Q5H
     Route: 048
     Dates: start: 20141125

REACTIONS (2)
  - Herpes simplex [Recovering/Resolving]
  - Self-medication [Not Recovered/Not Resolved]

NARRATIVE: CASE EVENT DATE: 20141125
